FAERS Safety Report 8739406 (Version 3)
Quarter: 2012Q4

REPORT INFORMATION
  Report Type: Report from Study
  Country: ES (occurrence: ES)
  Receive Date: 20120823
  Receipt Date: 20120910
  Transmission Date: 20130627
  Serious: Yes (Hospitalization)
  Sender: FDA-Public Use
  Company Number: ES-009507513-1208ESP007100

PATIENT

DRUGS (2)
  1. TEMOZOLOMIDE [Suspect]
     Indication: GLIOBLASTOMA
     Dosage: 85 mg/m2, qd
     Route: 048
     Dates: start: 20120605, end: 20120703
  2. BEVACIZUMAB [Suspect]
     Indication: GLIOBLASTOMA
     Dosage: 10 mg/kg/15 days for two cycles
     Route: 042
     Dates: start: 20120605, end: 20120716

REACTIONS (5)
  - Herpes zoster [Recovering/Resolving]
  - Pyrexia [None]
  - General physical health deterioration [None]
  - Chills [None]
  - Headache [None]
